FAERS Safety Report 9858754 (Version 1)
Quarter: 2014Q1

REPORT INFORMATION
  Report Type: Spontaneous
  Country: US (occurrence: US)
  Receive Date: 20140131
  Receipt Date: 20140131
  Transmission Date: 20141002
  Serious: Yes (Hospitalization)
  Sender: FDA-Public Use
  Company Number: US-ELI_LILLY_AND_COMPANY-US201401007434

PATIENT
  Sex: Male

DRUGS (7)
  1. INSULIN HUMAN [Suspect]
     Indication: DIABETES MELLITUS
     Dosage: 18 U, BID
     Route: 065
     Dates: start: 20130213
  2. INSULIN HUMAN [Suspect]
     Dosage: 18 U, BID
     Route: 065
  3. INSULIN HUMAN [Suspect]
     Indication: DIABETES MELLITUS
     Dosage: UNK, PRN
     Route: 065
  4. LIPITOR [Concomitant]
     Dosage: 40 MG, QD
  5. LASIX                              /00032601/ [Concomitant]
     Dosage: 40 MG, UNKNOWN
  6. LOSARTAN [Concomitant]
     Dosage: UNK
  7. FENOFIBRATE [Concomitant]
     Dosage: 160 MG, QD

REACTIONS (4)
  - Diabetic foot infection [Unknown]
  - Hearing impaired [Unknown]
  - Product tampering [Unknown]
  - Medication error [Unknown]
